FAERS Safety Report 5369932-4 (Version None)
Quarter: 2007Q2

REPORT INFORMATION
  Report Type: 
  Country: None (occurrence: None)
  Receive Date: 20070621
  Receipt Date: 20070531
  Transmission Date: 20071010
  Serious: Yes (Hospitalization, Other)
  Sender: FDA-Public Use
  Company Number: ENTC2007-0125

PATIENT
  Age: 50 Year
  Sex: Female

DRUGS (5)
  1. STALEVO 100 [Suspect]
     Indication: PARKINSON'S DISEASE
     Dosage: ORAL
     Route: 048
     Dates: start: 20061015, end: 20070402
  2. MODOPAR [Concomitant]
  3. ATARAX [Concomitant]
  4. DAFALGAN [Concomitant]
  5. MOTILIUM [Concomitant]

REACTIONS (3)
  - IRON DEFICIENCY ANAEMIA [None]
  - MENOMETRORRHAGIA [None]
  - MICROCYTIC ANAEMIA [None]
